FAERS Safety Report 6542502-8 (Version None)
Quarter: 2010Q1

REPORT INFORMATION
  Report Type: 
  Country: None (occurrence: None)
  Receive Date: 20100119
  Receipt Date: 20100107
  Transmission Date: 20100710
  Serious: Yes (Hospitalization)
  Sender: FDA-Public Use
  Company Number: FR-GENENTECH-296744

PATIENT
  Sex: Female

DRUGS (17)
  1. MABTHERA [Suspect]
     Indication: B-CELL LYMPHOMA
     Dosage: 375 MG/M2, UNK
     Route: 042
     Dates: start: 20090203
  2. MABTHERA [Suspect]
     Dosage: UNK
     Route: 042
  3. CISPLATIN [Suspect]
     Indication: B-CELL LYMPHOMA
     Dosage: 100 MG/M2, UNK
     Route: 042
     Dates: start: 20090203
  4. DEXAMETHASONE [Suspect]
     Indication: B-CELL LYMPHOMA
     Dosage: UNK
     Route: 042
     Dates: start: 20090203, end: 20090206
  5. DEXAMETHASONE [Suspect]
     Dosage: UNK
     Route: 042
  6. ARACYTINE [Suspect]
     Indication: B-CELL LYMPHOMA
     Dosage: 2000 MG/M2, UNK
     Route: 042
     Dates: start: 20090204
  7. ARACYTINE [Suspect]
     Dosage: UNK
     Route: 042
  8. ATACAND [Concomitant]
     Indication: HYPERTENSION
     Dosage: 8 MG, UNK
  9. ANAFRANIL [Concomitant]
     Indication: DEPRESSION
     Dosage: UNK
     Dates: start: 19950101
  10. OXAZEPAM [Concomitant]
     Indication: DRUG USE FOR UNKNOWN INDICATION
     Dosage: UNK
  11. INIPOMP [Concomitant]
     Indication: DRUG USE FOR UNKNOWN INDICATION
     Dosage: UNK
  12. PRIMPERAN TAB [Concomitant]
     Indication: DRUG USE FOR UNKNOWN INDICATION
     Dosage: UNK
  13. EMEND [Concomitant]
     Indication: DRUG USE FOR UNKNOWN INDICATION
     Dosage: UNK
  14. ZOPHREN [Concomitant]
     Indication: DRUG USE FOR UNKNOWN INDICATION
     Dosage: UNK
  15. SODIUM CHLORIDE [Concomitant]
     Indication: DRUG USE FOR UNKNOWN INDICATION
     Dosage: 1 L, Q12H
     Route: 042
  16. SODIUM BICARBONATE [Concomitant]
     Indication: DRUG USE FOR UNKNOWN INDICATION
     Dosage: 0.5 L, Q12H
  17. TRANXENE [Concomitant]
     Indication: DRUG USE FOR UNKNOWN INDICATION
     Dosage: UNK
     Route: 042

REACTIONS (3)
  - PULMONARY EMBOLISM [None]
  - TACHYCARDIA [None]
  - TROPONIN INCREASED [None]
